FAERS Safety Report 5658543-9 (Version None)
Quarter: 2008Q1

REPORT INFORMATION
  Report Type: 
  Country: None (occurrence: None)
  Receive Date: 20080310
  Receipt Date: 20070227
  Transmission Date: 20080703
  Serious: No
  Sender: FDA-Public Use
  Company Number: US-BAYER-200710633BCC

PATIENT
  Sex: Female
  Weight: 77 kg

DRUGS (6)
  1. ALEVE [Suspect]
     Indication: MYALGIA
     Dosage: UNIT DOSE: 220 MG
     Route: 048
     Dates: start: 20060101
  2. ASPIRIN [Suspect]
  3. FELODIPINE [Concomitant]
  4. ATENOL-CHLOR [Concomitant]
  5. ENALAPRIL MALEATE [Concomitant]
  6. LOVASTATIN [Concomitant]

REACTIONS (1)
  - OEDEMA PERIPHERAL [None]
